FAERS Safety Report 10168748 (Version 1)
Quarter: 2014Q2

REPORT INFORMATION
  Report Type: Spontaneous
  Country: GB (occurrence: GB)
  Receive Date: 20140513
  Receipt Date: 20140513
  Transmission Date: 20141212
  Serious: Yes (Other)
  Sender: FDA-Public Use
  Company Number: PHHY2014GB057191

PATIENT
  Age: 73 Year
  Sex: Female
  Weight: 70 kg

DRUGS (11)
  1. AMOXICILLIN [Suspect]
     Dates: start: 20140130, end: 20140206
  2. AMOXICILLIN [Suspect]
     Dates: start: 20140312
  3. ASPIRIN [Concomitant]
     Dates: start: 20131119
  4. ATORVASTATIN [Concomitant]
     Dates: start: 20131119
  5. BISOPROLOL [Concomitant]
     Dates: start: 20131119
  6. FUCITHALMIC [Concomitant]
     Dates: start: 20140122, end: 20140129
  7. INDAPAMIDE [Concomitant]
     Dates: start: 20131119
  8. ISOSORBIDE MONONITRATE [Concomitant]
     Dates: start: 20131119
  9. LANSOPRAZOLE [Concomitant]
     Dates: start: 20131212
  10. PARACETAMOL [Concomitant]
     Dates: start: 20131119
  11. RAMIPRIL [Concomitant]
     Dates: start: 20131119

REACTIONS (3)
  - Rash [Recovering/Resolving]
  - Pruritus [Unknown]
  - Dyspnoea [Unknown]
